FAERS Safety Report 23192003 (Version 1)
Quarter: 2023Q4

REPORT INFORMATION
  Report Type: Report from Study
  Country: US (occurrence: US)
  Receive Date: 20231116
  Receipt Date: 20231116
  Transmission Date: 20240110
  Serious: No
  Sender: FDA-Public Use
  Company Number: US-BIOVITRUM-2023-US-018117

PATIENT
  Age: 75 Year
  Sex: Female

DRUGS (2)
  1. DOPTELET [Suspect]
     Active Substance: AVATROMBOPAG MALEATE
     Indication: Immune thrombocytopenia
     Dosage: 20 MG DAILY
     Route: 048
     Dates: start: 202305
  2. DOPTELET [Suspect]
     Active Substance: AVATROMBOPAG MALEATE
     Dosage: 20 MG, 2 TABLETS (40 MG) EVERY OTHER DAY ALTERNATING WITH TAKING ONE TABLET EVERY OTHER DAY
     Route: 048
     Dates: start: 202305, end: 20231108

REACTIONS (2)
  - Adverse drug reaction [Unknown]
  - Abdominal pain upper [Recovering/Resolving]
